FAERS Safety Report 23410373 (Version 1)
Quarter: 2024Q1

REPORT INFORMATION
  Report Type: Spontaneous
  Country: GB (occurrence: GB)
  Receive Date: 20240117
  Receipt Date: 20240117
  Transmission Date: 20240409
  Serious: Yes (Other)
  Sender: FDA-Public Use
  Company Number: None

PATIENT
  Age: 77 Year
  Sex: Female
  Weight: 84 kg

DRUGS (6)
  1. TRAZODONE [Suspect]
     Active Substance: TRAZODONE HYDROCHLORIDE
     Indication: Confusional state
     Dosage: 1 DOSAGE FORM, BID(WHEN NEEDED)
     Route: 065
     Dates: start: 20231218
  2. APIXABAN [Concomitant]
     Active Substance: APIXABAN
     Dosage: 1 DOSAGE FORM, BID
     Route: 065
     Dates: start: 20230921
  3. BISOPROLOL [Concomitant]
     Active Substance: BISOPROLOL\BISOPROLOL FUMARATE
     Dosage: 1 DOSAGE FORM, QD
     Route: 065
     Dates: start: 20230921
  4. CODEINE PHOSPHATE [Concomitant]
     Active Substance: CODEINE PHOSPHATE
     Dosage: TAKE 1 TO 2 AS REQUIRED
     Route: 065
     Dates: start: 20231127, end: 20231225
  5. MEMANTINE [Concomitant]
     Active Substance: MEMANTINE
     Dosage: 1 DOSAGE FORM, QD
     Route: 065
     Dates: start: 20231218
  6. ACETAMINOPHEN [Concomitant]
     Active Substance: ACETAMINOPHEN
     Dosage: TAKE 1 OR 2  6-8HOURLY
     Route: 065
     Dates: start: 20230921

REACTIONS (2)
  - Loss of consciousness [Unknown]
  - Electrocardiogram QT prolonged [Recovered/Resolved]

NARRATIVE: CASE EVENT DATE: 20240102
